FAERS Safety Report 8920321 (Version 1)
Quarter: 2012Q4

REPORT INFORMATION
  Report Type: 
  Country: US (occurrence: US)
  Receive Date: 20121122
  Receipt Date: 20121122
  Transmission Date: 20130627
  Serious: No
  Sender: FDA-Public Use
  Company Number: US-JNJFOC-20121105873

PATIENT
  Age: 39 Year
  Sex: Female
  Weight: 117.94 kg

DRUGS (1)
  1. DURAGESIC [Suspect]
     Indication: ABDOMINAL HERNIA
     Route: 062
     Dates: start: 20121106

REACTIONS (1)
  - Wrong technique in drug usage process [Unknown]
